FAERS Safety Report 14311236 (Version 2)
Quarter: 2019Q4

REPORT INFORMATION
  Report Type: Spontaneous
  Country: US (occurrence: US)
  Receive Date: 20171221
  Receipt Date: 20191212
  Transmission Date: 20200122
  Serious: No
  Sender: FDA-Public Use
  Company Number: US-NOVEN PHARMACEUTICALS, INC.-US2017000179

PATIENT

DRUGS (4)
  1. MINIVELLE [Suspect]
     Active Substance: ESTRADIOL
     Dosage: 0.05 MG, UNK
     Route: 062
  2. PROGESTIN [Concomitant]
     Active Substance: PROGESTERONE
     Indication: HORMONE THERAPY
  3. MINIVELLE [Suspect]
     Active Substance: ESTRADIOL
     Indication: HOT FLUSH
     Dosage: 0.05 MG, UNKNOWN
     Route: 062
     Dates: start: 2013, end: 201701
  4. MINIVELLE [Suspect]
     Active Substance: ESTRADIOL
     Indication: NIGHT SWEATS
     Dosage: 0.05 MG, UNKNOWN
     Route: 062
     Dates: start: 201701

REACTIONS (6)
  - Blood test abnormal [Not Recovered/Not Resolved]
  - Hot flush [Not Recovered/Not Resolved]
  - Therapeutic product ineffective [Not Recovered/Not Resolved]
  - Muscle spasms [Recovered/Resolved]
  - Product adhesion issue [Not Recovered/Not Resolved]
  - Pain [Recovered/Resolved]
